FAERS Safety Report 9974507 (Version 1)
Quarter: 2014Q1

REPORT INFORMATION
  Report Type: Report from Study
  Country: US (occurrence: US)
  Receive Date: 20140306
  Receipt Date: 20140306
  Transmission Date: 20141002
  Serious: No
  Sender: FDA-Public Use
  Company Number: US-ABBVIE-13P-163-1157205-00

PATIENT
  Age: 35 Year
  Sex: Male
  Weight: 99.88 kg

DRUGS (6)
  1. HUMIRA [Suspect]
     Indication: COLITIS ULCERATIVE
     Dosage: 4 PENS, 1ST LOADING DOSE
     Route: 058
     Dates: start: 20130923, end: 20130923
  2. PFC [Suspect]
     Indication: LIVER DISORDER
     Dosage: DIET SUPPLEMENT
  3. ASACOL [Concomitant]
     Indication: PRODUCT USED FOR UNKNOWN INDICATION
  4. CITALOPRAM [Concomitant]
     Indication: PRODUCT USED FOR UNKNOWN INDICATION
  5. AZOTHIAPRINE [Concomitant]
     Indication: PRODUCT USED FOR UNKNOWN INDICATION
  6. UROSIDOL [Concomitant]
     Indication: COLITIS ULCERATIVE

REACTIONS (4)
  - Rhinorrhoea [Recovering/Resolving]
  - Nasopharyngitis [Not Recovered/Not Resolved]
  - Nasal congestion [Recovering/Resolving]
  - Nasopharyngitis [Recovering/Resolving]
